FAERS Safety Report 7233926-4 (Version None)
Quarter: 2011Q1

REPORT INFORMATION
  Report Type: 
  Country: None (occurrence: None)
  Receive Date: 20110113
  Receipt Date: 20110113
  Transmission Date: 20110831
  Serious: Yes (Hospitalization)
  Sender: FDA-Public Use
  Company Number: None

PATIENT
  Age: 63 Year
  Sex: Male
  Weight: 116 kg

DRUGS (2)
  1. TEA (DANDELION ROOT) [Suspect]
  2. WARFARIN SODIUM [Suspect]
     Dosage: 5 MG AT BEDTIME PO
     Route: 048
     Dates: start: 20101109

REACTIONS (1)
  - INTERNATIONAL NORMALISED RATIO INCREASED [None]
